FAERS Safety Report 7085399-2 (Version None)
Quarter: 2010Q4

REPORT INFORMATION
  Report Type: 
  Country: None (occurrence: None)
  Receive Date: 20101105
  Receipt Date: 20101029
  Transmission Date: 20110411
  Serious: Yes (Other)
  Sender: FDA-Public Use
  Company Number: FR-PFIZER INC-2010123670

PATIENT
  Age: 64 Year
  Sex: Male
  Weight: 104 kg

DRUGS (7)
  1. VFEND [Suspect]
     Indication: INTERVERTEBRAL DISCITIS
     Dosage: 1 DF, 2X/DAY
     Route: 048
     Dates: start: 20100412
  2. AMLODIPINE/ PERINDOPRIL ARGININE [Interacting]
     Indication: HYPERTENSION
     Dosage: 1 DF, 1X/DAY
     Route: 048
     Dates: start: 20100601, end: 20101001
  3. PLAVIX [Concomitant]
     Dosage: 1 DF, 1X/DAY
     Dates: end: 20101001
  4. KARDEGIC [Concomitant]
     Dosage: UNK
  5. PERINDOPRIL ERBUMINE [Concomitant]
     Dosage: 5 MG, 1X/DAY
  6. AMLOR [Concomitant]
     Dosage: 10 MG, 1X/DAY
     Dates: end: 20100701
  7. NOVOMIX [Concomitant]
     Dosage: UNK

REACTIONS (5)
  - DRUG INTERACTION [None]
  - DRUG TOXICITY [None]
  - ERYTHEMA [None]
  - GENERALISED OEDEMA [None]
  - HEADACHE [None]
